FAERS Safety Report 5531020-1 (Version None)
Quarter: 2007Q4

REPORT INFORMATION
  Report Type: 
  Country: None (occurrence: None)
  Receive Date: 20071130
  Receipt Date: 20071119
  Transmission Date: 20080405
  Serious: Yes (Other)
  Sender: FDA-Public Use
  Company Number: US-PFIZER INC-2007097963

PATIENT
  Sex: Female
  Weight: 84.1 kg

DRUGS (7)
  1. DETROL [Suspect]
     Indication: HYPERTONIC BLADDER
  2. DETROL LA [Suspect]
     Indication: HYPERTONIC BLADDER
  3. ZOLOFT [Concomitant]
  4. TAMOXIFEN CITRATE [Concomitant]
  5. ALL OTHER THERAPEUTIC PRODUCTS [Concomitant]
  6. ASTELIN [Concomitant]
  7. FLONASE [Concomitant]

REACTIONS (6)
  - BLOOD CHOLESTEROL ABNORMAL [None]
  - BREAST CANCER FEMALE [None]
  - DRUG INEFFECTIVE [None]
  - HYPERTONIC BLADDER [None]
  - MIXED INCONTINENCE [None]
  - STRESS URINARY INCONTINENCE [None]
